FAERS Safety Report 23914467 (Version 1)
Quarter: 2024Q2

REPORT INFORMATION
  Report Type: Report from Study
  Country: FR (occurrence: FR)
  Receive Date: 20240529
  Receipt Date: 20240529
  Transmission Date: 20240716
  Serious: Yes (Other)
  Sender: FDA-Public Use
  Company Number: FR-SUN PHARMACEUTICAL INDUSTRIES LTD-2024R1-448203

PATIENT
  Age: 47 Year
  Sex: Male

DRUGS (1)
  1. BACLOFEN [Suspect]
     Active Substance: BACLOFEN
     Indication: Alcohol use disorder
     Dosage: 100 MILLIGRAM
     Route: 048

REACTIONS (3)
  - Intentional product misuse [Unknown]
  - Restlessness [Unknown]
  - Confusional state [Unknown]
